FAERS Safety Report 24085436 (Version 1)
Quarter: 2024Q3

REPORT INFORMATION
  Report Type: Report from Study
  Country: ZA (occurrence: ZA)
  Receive Date: 20240712
  Receipt Date: 20240712
  Transmission Date: 20241016
  Serious: Yes (Death)
  Sender: ABBVIE
  Company Number: ZA-ABBVIE-5836589

PATIENT
  Age: 9 Year
  Sex: Male

DRUGS (2)
  1. BOTOX [Suspect]
     Active Substance: ONABOTULINUMTOXINA
     Indication: Craniocerebral injury
     Dosage: TIME INTERVAL: AS NECESSARY: FORM STRENGTH: 100 IU (INTERNATIONAL UNIT), FREQUENCY: ONCE EVERY TH...
     Route: 065
     Dates: start: 20221114, end: 20221114
  2. BOTOX [Suspect]
     Active Substance: ONABOTULINUMTOXINA
     Indication: Craniocerebral injury
     Dosage: TIME INTERVAL: AS NECESSARY: FORM STRENGTH: 100 IU (INTERNATIONAL UNIT), FREQUENCY: ONCE EVERY TH...
     Route: 065
     Dates: start: 20230929, end: 20230929

REACTIONS (2)
  - Death [Fatal]
  - Off label use [Unknown]

NARRATIVE: CASE EVENT DATE: 20221114
